FAERS Safety Report 17863289 (Version 1)
Quarter: 2020Q2

REPORT INFORMATION
  Report Type: Spontaneous
  Country: US (occurrence: US)
  Receive Date: 20200604
  Receipt Date: 20200604
  Transmission Date: 20200714
  Serious: No
  Sender: FDA-Public Use
  Company Number: US-009507513-2006USA001225

PATIENT
  Age: 68 Year
  Sex: Female

DRUGS (2)
  1. INVANZ [Suspect]
     Active Substance: ERTAPENEM SODIUM
     Indication: MENINGITIS
  2. INVANZ [Suspect]
     Active Substance: ERTAPENEM SODIUM
     Indication: SPINAL CORD INFECTION

REACTIONS (1)
  - Product use in unapproved indication [Unknown]
